FAERS Safety Report 7226233-7 (Version None)
Quarter: 2011Q1

REPORT INFORMATION
  Report Type: 
  Country: None (occurrence: None)
  Receive Date: 20110114
  Receipt Date: 20110104
  Transmission Date: 20110831
  Serious: Yes (Hospitalization)
  Sender: FDA-Public Use
  Company Number: PHHY2010TW87313

PATIENT
  Sex: Male
  Weight: 71.5 kg

DRUGS (3)
  1. ROCEPHIN [Concomitant]
  2. HEMOFILTRATION [Concomitant]
     Dosage: UNK
     Dates: start: 20101128
  3. ALISKIREN [Suspect]
     Indication: HYPERTENSION
     Dosage: 150 MG, UNK
     Route: 048
     Dates: start: 20100720

REACTIONS (3)
  - AORTIC ANEURYSM [None]
  - RENAL FAILURE ACUTE [None]
  - PANCREATITIS ACUTE [None]
